FAERS Safety Report 5591452-2 (Version None)
Quarter: 2008Q1

REPORT INFORMATION
  Report Type: 
  Country: None (occurrence: None)
  Receive Date: 20080111
  Receipt Date: 20071122
  Transmission Date: 20080703
  Serious: Yes (Other)
  Sender: FDA-Public Use
  Company Number: 07-447

PATIENT
  Age: 79 Year
  Sex: Female
  Weight: 58.9676 kg

DRUGS (11)
  1. ALEVE [Suspect]
     Indication: SCIATICA
     Dosage: 220-440 MG, QD, ORAL
     Route: 048
     Dates: start: 20070910
  2. LISINOPRIL [Concomitant]
  3. SIMVASTATIN [Concomitant]
  4. AMLODIOINE BESYLATE [Concomitant]
  5. TYLENOL [Concomitant]
  6. NATURE'S BOUNTY CALCIUM + D [Concomitant]
  7. PRILOSEC [Concomitant]
  8. ASPIRIN [Concomitant]
  9. VITAMIN B6 [Concomitant]
  10. STOOL SOFTENER [Concomitant]
  11. HYDROCHLOROTHIAZIDE [Concomitant]

REACTIONS (12)
  - AORTIC ARTERIOSCLEROSIS [None]
  - ARTERIOSCLEROSIS CORONARY ARTERY [None]
  - BLOOD CULTURE POSITIVE [None]
  - CHEST PAIN [None]
  - CHRONIC OBSTRUCTIVE PULMONARY DISEASE [None]
  - DYSPNOEA [None]
  - ELECTROCARDIOGRAM ABNORMAL [None]
  - ESCHERICHIA INFECTION [None]
  - INTERVERTEBRAL DISC DEGENERATION [None]
  - PULMONARY GRANULOMA [None]
  - PYELONEPHRITIS ACUTE [None]
  - URINARY TRACT INFECTION [None]
